FAERS Safety Report 15937242 (Version 1)
Quarter: 2019Q1

REPORT INFORMATION
  Report Type: Report from Study
  Country: US (occurrence: US)
  Receive Date: 20190208
  Receipt Date: 20190208
  Transmission Date: 20190417
  Serious: Yes (Hospitalization, Other)
  Sender: FDA-Public Use
  Company Number: US-SA-2019SA032237

PATIENT
  Sex: Female

DRUGS (1)
  1. INSULIN GLARGINE [Suspect]
     Active Substance: INSULIN GLARGINE
     Dosage: UNK
     Route: 058

REACTIONS (6)
  - Cardiac failure congestive [Unknown]
  - Phlebitis [Unknown]
  - Localised infection [Unknown]
  - Renal failure [Unknown]
  - Hospitalisation [Unknown]
  - Toe amputation [Unknown]
